FAERS Safety Report 9395086 (Version 1)
Quarter: 2013Q3

REPORT INFORMATION
  Report Type: Spontaneous
  Country: GB (occurrence: GB)
  Receive Date: 20130711
  Receipt Date: 20130711
  Transmission Date: 20140515
  Serious: Yes (Hospitalization)
  Sender: FDA-Public Use
  Company Number: GB-NOVOPROD-382324

PATIENT
  Age: 75 Year
  Sex: Male

DRUGS (9)
  1. VICTOZA [Suspect]
     Indication: DIABETES MELLITUS
     Dosage: 1.2 MG, QD
     Route: 058
     Dates: start: 20130417, end: 20130606
  2. ASPIRIN [Concomitant]
     Dosage: UNK
     Route: 065
  3. GLIMEPIRIDE [Concomitant]
     Dosage: UNK
     Route: 065
  4. HYDROXOCOBALAMIN [Concomitant]
     Dosage: UNK
     Route: 065
  5. LISINOPRIL [Concomitant]
     Dosage: UNK
     Route: 065
  6. METFORMIN [Concomitant]
     Dosage: UNK
     Route: 065
  7. PREDNISOLONE [Concomitant]
     Dosage: UNK
     Route: 065
  8. SIMVASTATIN [Concomitant]
     Dosage: UNK
     Route: 065
  9. TAMSULOSIN [Concomitant]
     Dosage: UNK
     Route: 065

REACTIONS (4)
  - Urinary tract infection [Recovered/Resolved]
  - Abdominal pain [Recovered/Resolved]
  - Diarrhoea [Recovered/Resolved]
  - Vomiting [Recovered/Resolved]
